FAERS Safety Report 19375982 (Version 2)
Quarter: 2021Q2

REPORT INFORMATION
  Report Type: Spontaneous
  Country: US (occurrence: US)
  Receive Date: 20210605
  Receipt Date: 20210611
  Transmission Date: 20210717
  Serious: Yes (Life-Threatening, Hospitalization, Other)
  Sender: FDA-Public Use
  Company Number: US-GLENMARK PHARMACEUTICALS-2021GMK054293

PATIENT
  Age: 15 Year
  Sex: Female

DRUGS (5)
  1. MELOXICAM. [Concomitant]
     Active Substance: MELOXICAM
     Indication: PRODUCT USED FOR UNKNOWN INDICATION
     Dosage: UNK
     Route: 065
  2. ASPIRIN [ACETYLSALICYLIC ACID] [Suspect]
     Active Substance: ASPIRIN
     Indication: PRODUCT USED FOR UNKNOWN INDICATION
     Dosage: UNK
     Route: 065
  3. METFORMIN HYDROCHLORIDE. [Suspect]
     Active Substance: METFORMIN HYDROCHLORIDE
     Indication: PRODUCT USED FOR UNKNOWN INDICATION
     Dosage: UNK
     Route: 065
  4. AMLODIPINE [Suspect]
     Active Substance: AMLODIPINE BESYLATE
     Indication: PRODUCT USED FOR UNKNOWN INDICATION
     Dosage: UNK
     Route: 065
  5. NAPROXEN. [Suspect]
     Active Substance: NAPROXEN
     Indication: PRODUCT USED FOR UNKNOWN INDICATION
     Dosage: UNK
     Route: 065

REACTIONS (14)
  - Bradycardia [Recovered/Resolved]
  - Overdose [Unknown]
  - Blood lactic acid increased [Recovered/Resolved]
  - Drug level increased [Unknown]
  - Distributive shock [Recovered/Resolved]
  - Metabolic acidosis [Recovering/Resolving]
  - Shock [Recovered/Resolved]
  - Haemodynamic instability [Recovering/Resolving]
  - Coma [Recovered/Resolved]
  - Lactic acidosis [Recovered/Resolved]
  - Epilepsy [Unknown]
  - Hypotension [Recovered/Resolved]
  - Drug level above therapeutic [Recovering/Resolving]
  - Condition aggravated [Recovered/Resolved]
